FAERS Safety Report 6903762-4 (Version None)
Quarter: 2010Q3

REPORT INFORMATION
  Report Type: 
  Country: None (occurrence: None)
  Receive Date: 20100804
  Receipt Date: 20081205
  Transmission Date: 20110219
  Serious: No
  Sender: FDA-Public Use
  Company Number: US-PFIZER INC-2008150367

PATIENT
  Sex: Female
  Weight: 73.016 kg

DRUGS (2)
  1. LYRICA [Suspect]
     Indication: OCCIPITAL NEURALGIA
     Dosage: UNK
     Route: 048
     Dates: start: 20080101
  2. CYMBALTA [Concomitant]
     Dosage: UNK

REACTIONS (1)
  - WEIGHT INCREASED [None]
